FAERS Safety Report 11167604 (Version 3)
Quarter: 2015Q2

REPORT INFORMATION
  Report Type: Spontaneous
  Country: US (occurrence: US)
  Receive Date: 20150605
  Receipt Date: 20150626
  Transmission Date: 20150821
  Serious: Yes (Death, Other)
  Sender: FDA-Public Use
  Company Number: US-ASTRAZENECA-2014SE52074

PATIENT
  Age: 29982 Day
  Sex: Male

DRUGS (32)
  1. FAMOTIDINE. [Concomitant]
     Active Substance: FAMOTIDINE
  2. FINASTERIDE. [Concomitant]
     Active Substance: FINASTERIDE
     Route: 048
  3. ALLEGRA [Concomitant]
     Active Substance: FEXOFENADINE HYDROCHLORIDE
     Dates: start: 20000417
  4. FEXOFENADINE [Concomitant]
     Active Substance: FEXOFENADINE\FEXOFENADINE HYDROCHLORIDE
     Dates: start: 20060628
  5. BUMETANIDE. [Concomitant]
     Active Substance: BUMETANIDE
     Dates: start: 20100603
  6. NOVOLOG [Concomitant]
     Active Substance: INSULIN ASPART
     Dosage: THREE TIMES A DAY
  7. CREON [Concomitant]
     Active Substance: PANCRELIPASE AMYLASE\PANCRELIPASE LIPASE\PANCRELIPASE PROTEASE
     Route: 048
  8. TORSEMIDE. [Concomitant]
     Active Substance: TORSEMIDE
     Route: 048
  9. FINA [Concomitant]
     Route: 048
  10. GLYBURIDE. [Concomitant]
     Active Substance: GLYBURIDE
     Route: 048
  11. AVANDIA [Concomitant]
     Active Substance: ROSIGLITAZONE MALEATE
     Dates: start: 20000525
  12. VIOXX [Concomitant]
     Active Substance: ROFECOXIB
     Dates: start: 20000525
  13. BYETTA [Suspect]
     Active Substance: EXENATIDE
     Route: 065
     Dates: start: 20051120, end: 201205
  14. BYETTA [Suspect]
     Active Substance: EXENATIDE
     Route: 065
     Dates: start: 20121002
  15. SPIRONOLACTONE. [Concomitant]
     Active Substance: SPIRONOLACTONE
     Route: 048
  16. CYCLOBENZAPRINE [Concomitant]
     Active Substance: CYCLOBENZAPRINE
     Dates: start: 20010421
  17. HYDROCODONE [Concomitant]
     Active Substance: HYDROCODONE
     Dates: start: 20010421
  18. ALLOPURINOL. [Concomitant]
     Active Substance: ALLOPURINOL
  19. CELEBREX [Concomitant]
     Active Substance: CELECOXIB
     Dates: start: 20010530
  20. PREDNISOLON [Concomitant]
     Active Substance: PREDNISOLONE
  21. DIOVAN [Concomitant]
     Active Substance: VALSARTAN
     Dates: start: 20020427
  22. ZOCOR [Concomitant]
     Active Substance: SIMVASTATIN
     Dates: start: 20020516
  23. FOLIC ACID. [Concomitant]
     Active Substance: FOLIC ACID
     Dates: start: 20040925
  24. STARLIX [Concomitant]
     Active Substance: NATEGLINIDE
     Route: 048
  25. CEPHALEXIN. [Concomitant]
     Active Substance: CEPHALEXIN
     Dates: start: 20001018
  26. TERAZOSIN [Concomitant]
     Active Substance: TERAZOSIN\TERAZOSIN HYDROCHLORIDE
     Dates: start: 20091126
  27. CARDENE [Concomitant]
     Active Substance: NICARDIPINE HYDROCHLORIDE
     Dates: start: 20000525
  28. FUROSEMIDE. [Concomitant]
     Active Substance: FUROSEMIDE
     Dates: start: 20010725
  29. BYETTA [Suspect]
     Active Substance: EXENATIDE
     Dosage: 10MCG/0.04 ML
     Route: 065
     Dates: start: 20051120
  30. PRADAXA [Concomitant]
     Active Substance: DABIGATRAN ETEXILATE MESYLATE
     Route: 048
  31. GLUCOPHAGE [Concomitant]
     Active Substance: METFORMIN HYDROCHLORIDE
     Dates: start: 20000525
  32. COUMADIN [Concomitant]
     Active Substance: WARFARIN SODIUM
     Dates: start: 20001201

REACTIONS (9)
  - Adenocarcinoma pancreas [Fatal]
  - Bile duct obstruction [Fatal]
  - Ascites [Unknown]
  - Splenomegaly [Fatal]
  - Jaundice [Fatal]
  - Hepatic failure [Unknown]
  - Pancreatic mass [Unknown]
  - Metastases to lymph nodes [Fatal]
  - Metastases to liver [Fatal]

NARRATIVE: CASE EVENT DATE: 20121204
